FAERS Safety Report 10329252 (Version 2)
Quarter: 2015Q1

REPORT INFORMATION
  Report Type: Spontaneous
  Country: IT (occurrence: IT)
  Receive Date: 20140721
  Receipt Date: 20150120
  Transmission Date: 20150720
  Serious: Yes (Hospitalization)
  Sender: FDA-Public Use
  Company Number: IT-TEVA-494068ISR

PATIENT
  Age: 74 Year
  Sex: Female
  Weight: 60 kg

DRUGS (3)
  1. CARBOLITHIUM 300 MG [Suspect]
     Active Substance: LITHIUM CARBONATE
     Indication: PSYCHOTIC DISORDER
     Dosage: 2 DOSAGE FORMS DAILY;
     Route: 048
     Dates: start: 20130101, end: 20140626
  2. RIVOTRIL [Concomitant]
     Active Substance: CLONAZEPAM
  3. RISPERDAL [Concomitant]
     Active Substance: RISPERIDONE

REACTIONS (6)
  - Language disorder [Recovered/Resolved]
  - Psychomotor retardation [Unknown]
  - Toxicity to various agents [Unknown]
  - Asthenia [Recovered/Resolved]
  - Drop attacks [Unknown]
  - Hypokinesia [Unknown]

NARRATIVE: CASE EVENT DATE: 20140620
